FAERS Safety Report 8112706-1 (Version None)
Quarter: 2012Q1

REPORT INFORMATION
  Report Type: 
  Country: None (occurrence: None)
  Receive Date: 20120131
  Receipt Date: 20120124
  Transmission Date: 20120608
  Serious: Yes (Death, Life-Threatening, Hospitalization, Disabling, Other)
  Sender: FDA-Public Use
  Company Number: 2012MA000790

PATIENT
  Sex: Female
  Weight: 52.2 kg

DRUGS (26)
  1. DIOVAN [Concomitant]
  2. LOPRESSOR [Concomitant]
  3. PREVACID [Concomitant]
  4. SEROQUEL [Concomitant]
  5. GLIMEPIRIDE [Concomitant]
  6. GLUCOPHOAGE [Concomitant]
  7. HYTONE [Concomitant]
  8. LASIX [Concomitant]
  9. LEXAPRO [Concomitant]
  10. GEODON [Concomitant]
  11. DIGOXIN [Suspect]
     Dosage: 0.125 MG;QD;PO
     Route: 048
     Dates: start: 20060807, end: 20071005
  12. ALLOPURINOL [Concomitant]
  13. CIPROFLOXACIN [Concomitant]
  14. COZAAR [Concomitant]
  15. ASPIRIN [Concomitant]
  16. METOPROLOL [Concomitant]
  17. TOPROL-XL [Concomitant]
  18. CATAPRES [Concomitant]
  19. FELODIPINE [Concomitant]
  20. PREMARIN [Concomitant]
  21. SYNTHROID [Concomitant]
  22. XYLOCAINE [Concomitant]
  23. AMARYL [Concomitant]
  24. HYDROCHLOROTHIAZIDE [Concomitant]
  25. ALDACTONE [Concomitant]
  26. FUROSEMIDE [Concomitant]

REACTIONS (58)
  - BLINDNESS TRANSIENT [None]
  - MEMORY IMPAIRMENT [None]
  - SOMNOLENCE [None]
  - EXECUTIVE DYSFUNCTION [None]
  - EYELID PTOSIS [None]
  - FAECAL INCONTINENCE [None]
  - DEPRESSION [None]
  - RENAL DISORDER [None]
  - STITCH ABSCESS [None]
  - INFLAMMATION [None]
  - PAIN [None]
  - PHARYNGEAL OEDEMA [None]
  - CHEST PAIN [None]
  - PSYCHOTIC DISORDER [None]
  - AGGRESSION [None]
  - ELECTROCARDIOGRAM CHANGE [None]
  - BLOOD TRIGLYCERIDES INCREASED [None]
  - BLOOD PRESSURE SYSTOLIC INCREASED [None]
  - RED BLOOD CELL SEDIMENTATION RATE INCREASED [None]
  - RECTAL HAEMORRHAGE [None]
  - HYPERTRIGLYCERIDAEMIA [None]
  - BLOOD GLUCOSE INCREASED [None]
  - DIZZINESS [None]
  - COGNITIVE DISORDER [None]
  - BLOOD PRESSURE INADEQUATELY CONTROLLED [None]
  - CEREBRAL DISORDER [None]
  - CAROTID ARTERY STENOSIS [None]
  - AMAUROSIS [None]
  - STRESS [None]
  - SENILE DEMENTIA [None]
  - BRADYCARDIA [None]
  - PECTUS EXCAVATUM [None]
  - PERIPHERAL PULSE DECREASED [None]
  - TINNITUS [None]
  - HIGH DENSITY LIPOPROTEIN DECREASED [None]
  - CONFUSIONAL STATE [None]
  - COLD SWEAT [None]
  - SYNCOPE [None]
  - ARRHYTHMIA [None]
  - JOINT STIFFNESS [None]
  - DIARRHOEA [None]
  - ANXIETY [None]
  - TYPE 2 DIABETES MELLITUS [None]
  - PALPITATIONS [None]
  - FEELING ABNORMAL [None]
  - ASTHENIA [None]
  - ATRIAL FIBRILLATION [None]
  - CAROTID ARTERIOSCLEROSIS [None]
  - HEADACHE [None]
  - JEALOUS DELUSION [None]
  - PARANOIA [None]
  - CHILLS [None]
  - RESUSCITATION [None]
  - VOMITING [None]
  - ANEURYSM [None]
  - PALLOR [None]
  - CEREBRAL ATROPHY [None]
  - RENAL CYST [None]
